FAERS Safety Report 5306682-4 (Version None)
Quarter: 2007Q2

REPORT INFORMATION
  Report Type: 
  Country: None (occurrence: None)
  Receive Date: 20070424
  Receipt Date: 20070413
  Transmission Date: 20071010
  Serious: Yes (Other)
  Sender: FDA-Public Use
  Company Number: GR-PFIZER INC-2007030801

PATIENT
  Age: 49 Year
  Sex: Male

DRUGS (5)
  1. LIPITOR [Suspect]
     Indication: THROMBOSIS PROPHYLAXIS
     Route: 048
     Dates: start: 20040101
  2. LOPRESSOR [Concomitant]
  3. IRBESARTAN [Concomitant]
  4. SALOSPIR [Concomitant]
  5. PLAVIX [Concomitant]
     Route: 048
     Dates: start: 20061229

REACTIONS (3)
  - CHEST PAIN [None]
  - CORONARY ARTERY OCCLUSION [None]
  - CORONARY ARTERY STENOSIS [None]
